FAERS Safety Report 4752740-2 (Version None)
Quarter: 2005Q3

REPORT INFORMATION
  Report Type: 
  Country: None (occurrence: None)
  Receive Date: 20050823
  Receipt Date: 20050809
  Transmission Date: 20060218
  Serious: Yes (Hospitalization, Disabling, Other)
  Sender: FDA-Public Use
  Company Number: 2005115341

PATIENT
  Sex: Female

DRUGS (1)
  1. DEPO-PROVERA [Suspect]
     Indication: ENDOMETRIOSIS
     Dosage: MOST RECENT INJECTION
     Dates: start: 20050211, end: 20050211

REACTIONS (7)
  - ANAEMIA [None]
  - ANXIETY DISORDER [None]
  - DEPRESSION [None]
  - HAEMORRHAGE [None]
  - MOOD ALTERED [None]
  - PANIC ATTACK [None]
  - WEIGHT INCREASED [None]
